FAERS Safety Report 14496019 (Version 1)
Quarter: 2018Q1

REPORT INFORMATION
  Report Type: Spontaneous
  Country: US (occurrence: US)
  Receive Date: 20180207
  Receipt Date: 20180207
  Transmission Date: 20180509
  Serious: Yes (Hospitalization, Other)
  Sender: FDA-Public Use
  Company Number: US-ZYDUS-018978

PATIENT
  Age: 74 Year
  Sex: Female

DRUGS (14)
  1. LIOTHYRONINE [Interacting]
     Active Substance: LIOTHYRONINE
     Indication: PRODUCT USED FOR UNKNOWN INDICATION
     Route: 065
  2. OLOPATADINE/OLOPATADINE HYDROCHLORIDE [Interacting]
     Active Substance: OLOPATADINE
     Indication: PRODUCT USED FOR UNKNOWN INDICATION
     Route: 047
  3. OXYCODONE/PARACETAMOL [Interacting]
     Active Substance: ACETAMINOPHEN\OXYCODONE HYDROCHLORIDE
     Indication: ANALGESIC THERAPY
     Route: 065
  4. SERTRALINE [Interacting]
     Active Substance: SERTRALINE HYDROCHLORIDE
     Indication: PRODUCT USED FOR UNKNOWN INDICATION
     Route: 065
  5. RISPERIDONE. [Interacting]
     Active Substance: RISPERIDONE
     Indication: ABNORMAL BEHAVIOUR
     Route: 065
  6. PREGABALIN. [Interacting]
     Active Substance: PREGABALIN
     Indication: PRODUCT USED FOR UNKNOWN INDICATION
     Route: 065
  7. DONEPEZIL/DONEPEZIL HYDROCHLORIDE [Suspect]
     Active Substance: DONEPEZIL HYDROCHLORIDE
     Indication: PRODUCT USED FOR UNKNOWN INDICATION
     Route: 065
  8. NAPROXEN. [Interacting]
     Active Substance: NAPROXEN
     Indication: ANALGESIC THERAPY
     Route: 065
  9. ESTROGENS CONJUGATED [Interacting]
     Active Substance: ESTROGENS, CONJUGATED
     Indication: PRODUCT USED FOR UNKNOWN INDICATION
     Dosage: 0.625 MG/G VAGINALLY TWICE WEEKLY
     Route: 067
  10. LORAZEPAM. [Interacting]
     Active Substance: LORAZEPAM
     Indication: ABNORMAL BEHAVIOUR
     Route: 065
  11. LEVOTHYROXINE. [Interacting]
     Active Substance: LEVOTHYROXINE
     Indication: PRODUCT USED FOR UNKNOWN INDICATION
     Route: 065
  12. LORATADINE. [Interacting]
     Active Substance: LORATADINE
     Indication: HYPERSENSITIVITY
     Route: 065
  13. KETAMINE/KETOPROFEN/GABAPENTIN/LIDOCAINE/CLONIDINE [Interacting]
     Active Substance: CLONIDINE\GABAPENTIN\KETAMINE\KETOPROFEN\LIDOCAINE
     Indication: ANALGESIC THERAPY
     Route: 067
  14. CALCIUM/COLECALCIFEROL [Interacting]
     Active Substance: CALCIUM\CHOLECALCIFEROL
     Indication: PRODUCT USED FOR UNKNOWN INDICATION
     Dosage: CALCIUM 600 MG PLUS VITAMIN D 400 IU TWICE DAILY
     Route: 065

REACTIONS (10)
  - Abnormal behaviour [Recovered/Resolved]
  - Drug interaction [Unknown]
  - Mental disorder [Recovered/Resolved]
  - Language disorder [Recovered/Resolved]
  - Delirium [Recovered/Resolved]
  - Suicidal ideation [Recovered/Resolved]
  - Agitation [Recovered/Resolved]
  - Homicidal ideation [Recovered/Resolved]
  - Disorientation [Recovered/Resolved]
  - Cognitive disorder [None]
